FAERS Safety Report 5275999-4 (Version None)
Quarter: 2007Q1

REPORT INFORMATION
  Report Type: 
  Country: None (occurrence: None)
  Receive Date: 20070326
  Receipt Date: 20070312
  Transmission Date: 20070707
  Serious: Yes (Other)
  Sender: FDA-Public Use
  Company Number: PHEH2004US10648

PATIENT
  Age: 49 Year
  Sex: Female
  Weight: 72.562 kg

DRUGS (4)
  1. ESTRADERM [Suspect]
     Indication: MENOPAUSAL SYMPTOMS
     Dosage: 0.05 MG, QW2
     Route: 062
     Dates: start: 19840101, end: 19920101
  2. PROVERA [Suspect]
     Indication: MENOPAUSAL SYMPTOMS
     Dosage: 5 MG, QD DAYS 16 - 25
     Route: 048
     Dates: start: 19840101, end: 19920101
  3. MILK THISTLE [Concomitant]
  4. VAGIFEM [Concomitant]
     Dosage: UNK, QW

REACTIONS (22)
  - ALPHA 1 FOETOPROTEIN INCREASED [None]
  - ANKLE FRACTURE [None]
  - BREAST CANCER IN SITU [None]
  - BREAST MICROCALCIFICATION [None]
  - BREAST PROSTHESIS IMPLANTATION [None]
  - CAST APPLICATION [None]
  - DEPRESSION [None]
  - FACET JOINT SYNDROME [None]
  - FALL [None]
  - HEPATIC CIRRHOSIS [None]
  - HEPATIC LESION [None]
  - HEPATITIS C [None]
  - INTERVERTEBRAL DISC DEGENERATION [None]
  - INTERVERTEBRAL DISC PROTRUSION [None]
  - LICHEN PLANUS [None]
  - LIVER TRANSPLANT [None]
  - MODIFIED RADICAL MASTECTOMY [None]
  - OESTROGEN RECEPTOR ASSAY POSITIVE [None]
  - OSTEOPENIA [None]
  - PEPTIC ULCER [None]
  - PROGESTERONE RECEPTOR ASSAY POSITIVE [None]
  - TENDINOUS CONTRACTURE [None]
